FAERS Safety Report 4262228-3 (Version None)
Quarter: 2004Q1

REPORT INFORMATION
  Report Type: 
  Country: None (occurrence: None)
  Receive Date: 20040102
  Receipt Date: 20030508
  Transmission Date: 20041129
  Serious: Yes (Hospitalization)
  Sender: FDA-Public Use
  Company Number: PHBS2003JP04921

PATIENT
  Age: 73 Year
  Sex: Female
  Weight: 60 kg

DRUGS (8)
  1. DIURETICS [Concomitant]
  2. GLEEVEC [Suspect]
     Indication: GASTROINTESTINAL STROMAL TUMOUR
     Dosage: 400 MG/D
     Route: 048
     Dates: start: 20021101, end: 20030506
  3. CELESTAMINE TAB [Suspect]
     Dosage: 2 DF/D
     Route: 048
     Dates: start: 20010101, end: 20030505
  4. THEOLONG [Concomitant]
     Dosage: 4 DF/D
     Route: 048
     Dates: start: 20010101, end: 20030505
  5. MUCODYNE [Concomitant]
     Dosage: 3 DF/D
     Dates: start: 20010101
  6. CIMETIDINE HCL [Concomitant]
     Dosage: 4 DF/D
     Route: 065
     Dates: start: 20030401, end: 20030506
  7. PRIMPERAN TAB [Concomitant]
     Dosage: 3 DF/D
     Dates: start: 20030401, end: 20030506
  8. TAGAMET [Suspect]
     Dosage: 4 DF/DAY
     Dates: start: 20030401, end: 20030506

REACTIONS (9)
  - ABDOMINAL PAIN UPPER [None]
  - ANOREXIA [None]
  - DIARRHOEA [None]
  - DRUG INTERACTION [None]
  - EYELID OEDEMA [None]
  - GASTRIC ULCER PERFORATION [None]
  - IMPAIRED HEALING [None]
  - OEDEMA PERIPHERAL [None]
  - TINNITUS [None]
